FAERS Safety Report 10755936 (Version 2)
Quarter: 2015Q1

REPORT INFORMATION
  Report Type: Report from Study
  Country: US (occurrence: US)
  Receive Date: 20150202
  Receipt Date: 20150203
  Transmission Date: 20150721
  Serious: Yes (Other)
  Sender: FDA-Public Use
  Company Number: US-ASTRAZENECA-2014SE90817

PATIENT
  Age: 49 Year
  Sex: Male
  Weight: 99.7 kg

DRUGS (2)
  1. AZD9291 [Suspect]
     Active Substance: INVESTIGATIONAL PRODUCT
     Route: 048
     Dates: start: 20141114, end: 20141114
  2. OMEPRAZOLE. [Suspect]
     Active Substance: OMEPRAZOLE
     Dosage: 40 MG DAILY FOR FIVE DAYS
     Route: 048
     Dates: start: 20141110, end: 20141114

REACTIONS (2)
  - Transaminases increased [Recovered/Resolved]
  - Blood creatine phosphokinase increased [Recovered/Resolved]

NARRATIVE: CASE EVENT DATE: 20141121
